FAERS Safety Report 8788010 (Version 3)
Quarter: 2012Q4

REPORT INFORMATION
  Report Type: 
  Country: US (occurrence: US)
  Receive Date: 20120914
  Receipt Date: 20121116
  Transmission Date: 20130627
  Serious: Yes (Other)
  Sender: FDA-Public Use
  Company Number: US-PFIZER INC-2012222693

PATIENT
  Age: 58 Year
  Sex: Female

DRUGS (9)
  1. LIPITOR [Suspect]
     Dosage: UNK
     Dates: start: 2002, end: 201208
  2. LEFLUNOMIDE [Suspect]
     Dosage: 20 mg, UNK
     Dates: start: 201204, end: 2012
  3. LEFLUNOMIDE [Suspect]
     Dosage: UNK
     Dates: start: 201204, end: 201208
  4. ARAVA [Suspect]
     Indication: RHEUMATOID ARTHRITIS
     Dosage: 20 mg, 1x/day on and off
     Route: 048
     Dates: start: 1995, end: 201105
  5. ARAVA [Suspect]
     Dosage: UNK
     Dates: start: 201204
  6. ARAVA [Suspect]
     Dosage: 20 mg, Daily
     Route: 048
     Dates: end: 20120831
  7. JANUVIA [Suspect]
     Dosage: UNK
     Dates: start: 201109, end: 201208
  8. METFORMIN [Concomitant]
     Dosage: UNK
  9. VALSARTAN [Concomitant]
     Dosage: UNK

REACTIONS (13)
  - Hepatic steatosis [Unknown]
  - Alanine aminotransferase increased [Unknown]
  - Aspartate aminotransferase increased [Unknown]
  - Blood alkaline phosphatase increased [Unknown]
  - Staphylococcal infection [Unknown]
  - Uterine cyst [Unknown]
  - Arthritis [Unknown]
  - Hypertension [Unknown]
  - Infection [Unknown]
  - Furuncle [Unknown]
  - Heart rate increased [Unknown]
  - Oedema peripheral [Unknown]
  - Dehydration [Unknown]
